FAERS Safety Report 7779688-3 (Version None)
Quarter: 2011Q3

REPORT INFORMATION
  Report Type: 
  Country: None (occurrence: None)
  Receive Date: 20110927
  Receipt Date: 20110926
  Transmission Date: 20111222
  Serious: Yes (Other)
  Sender: FDA-Public Use
  Company Number: CN-PFIZER INC-2011227891

PATIENT
  Sex: Male

DRUGS (3)
  1. ZOLOFT [Suspect]
     Dosage: 3 TABLETS A DAY
     Route: 048
     Dates: start: 20110826
  2. CLONAZEPAM [Concomitant]
     Indication: ANXIETY
     Route: 048
  3. CLONAZEPAM [Concomitant]
     Indication: INSOMNIA

REACTIONS (2)
  - DIARRHOEA [None]
  - HAEMATOCHEZIA [None]
